FAERS Safety Report 10065101 (Version 1)
Quarter: 2014Q1

REPORT INFORMATION
  Report Type: Spontaneous
  Country: US (occurrence: None)
  Receive Date: 20140328
  Receipt Date: 20140328
  Transmission Date: 20141002
  Serious: No
  Sender: FDA-Public Use
  Company Number: CABO-13003822

PATIENT
  Age: 63 Year
  Sex: Male

DRUGS (6)
  1. COMETRIQ (CABOZANTINIB) [Suspect]
     Indication: THYROID CANCER
     Route: 048
     Dates: start: 20131203, end: 20131222
  2. TEPRA (PROPRANOLOL HYDROCHLORIDE) [Concomitant]
  3. SYNTHROID (LEVOTHRYOXINE SODIUM) [Concomitant]
  4. KEPPRA (LEVETIRACETAM) [Concomitant]
  5. THYROID [Suspect]
  6. ANTIHYPERSENSITIVES [Concomitant]

REACTIONS (5)
  - Seizure like phenomena [None]
  - Blood pressure increased [None]
  - Burning sensation [None]
  - Pain in extremity [None]
  - Dry skin [None]
